FAERS Safety Report 18094386 (Version 5)
Quarter: 2021Q2

REPORT INFORMATION
  Report Type: Report from Study
  Country: JP (occurrence: JP)
  Receive Date: 20200730
  Receipt Date: 20210525
  Transmission Date: 20210717
  Serious: Yes (Other)
  Sender: FDA-Public Use
  Company Number: JP-PFIZER INC-2020168144

PATIENT
  Age: 74 Year
  Sex: Male

DRUGS (3)
  1. FUROSEMIDE. [Concomitant]
     Active Substance: FUROSEMIDE
     Dosage: 40 MG, 1X/DAY (IN THE MORNING)
     Route: 048
     Dates: end: 20200611
  2. VYNDAQEL [Suspect]
     Active Substance: TAFAMIDIS MEGLUMINE
     Indication: CARDIAC AMYLOIDOSIS
     Dosage: 80 MG, DAILY
     Route: 048
     Dates: start: 20200225
  3. FUROSEMIDE. [Concomitant]
     Active Substance: FUROSEMIDE
     Dosage: 60 MG, DAILY (40MG IN MORNING, 20MG IN EVENING)
     Route: 048
     Dates: start: 20200612

REACTIONS (9)
  - Brain natriuretic peptide increased [Unknown]
  - Glomerular filtration rate decreased [Unknown]
  - Oedema [Not Recovered/Not Resolved]
  - Hepatic steatosis [Unknown]
  - Obesity [Unknown]
  - Urticaria [Recovered/Resolved]
  - Atrial fibrillation [Unknown]
  - Blood cholinesterase decreased [Unknown]
  - Gamma-glutamyltransferase increased [Unknown]

NARRATIVE: CASE EVENT DATE: 20200402
